FAERS Safety Report 9544410 (Version 1)
Quarter: 2013Q3

REPORT INFORMATION
  Report Type: Spontaneous
  Country: US (occurrence: US)
  Receive Date: 20130923
  Receipt Date: 20130923
  Transmission Date: 20140515
  Serious: No
  Sender: FDA-Public Use
  Company Number: US-GLAXOSMITHKLINE-A0991235A

PATIENT
  Age: 52 Year
  Sex: Female

DRUGS (1)
  1. ABREVA [Suspect]
     Indication: ORAL HERPES
     Dates: start: 20120822, end: 20120825

REACTIONS (8)
  - Malaise [Not Recovered/Not Resolved]
  - Oropharyngeal pain [Not Recovered/Not Resolved]
  - Nasopharyngitis [Not Recovered/Not Resolved]
  - Pharyngeal oedema [Not Recovered/Not Resolved]
  - Oropharyngeal pain [Recovered/Resolved]
  - Oropharyngeal discomfort [Not Recovered/Not Resolved]
  - Drug ineffective [Unknown]
  - Oral herpes [Not Recovered/Not Resolved]
